FAERS Safety Report 21145415 (Version 1)
Quarter: 2022Q3

REPORT INFORMATION
  Report Type: Spontaneous
  Country: US (occurrence: US)
  Receive Date: 20220729
  Receipt Date: 20220729
  Transmission Date: 20221027
  Serious: No
  Sender: FDA-Public Use
  Company Number: US-JNJFOC-20220749576

PATIENT
  Age: 7 Decade

DRUGS (2)
  1. DARZALEX [Suspect]
     Active Substance: DARATUMUMAB
     Indication: Plasma cell myeloma
     Route: 065
     Dates: start: 20180831
  2. POMALIDOMIDE [Suspect]
     Active Substance: POMALIDOMIDE
     Indication: Plasma cell myeloma
     Route: 065
     Dates: start: 20180831

REACTIONS (5)
  - Dizziness [Unknown]
  - Pruritus [Unknown]
  - Hypoaesthesia [Unknown]
  - Pain in extremity [Unknown]
  - Intentional product use issue [Unknown]
